FAERS Safety Report 8204748-2 (Version None)
Quarter: 2012Q1

REPORT INFORMATION
  Report Type: 
  Country: None (occurrence: None)
  Receive Date: 20120309
  Receipt Date: 20120227
  Transmission Date: 20120608
  Serious: Yes (Hospitalization, Other)
  Sender: FDA-Public Use
  Company Number: 2012P1008484

PATIENT
  Age: 59 Year
  Sex: Female

DRUGS (1)
  1. CIPROFLOXACIN [Suspect]
     Indication: URINARY TRACT INFECTION
     Dosage: 1000 MG, QD

REACTIONS (7)
  - PRURITUS [None]
  - BLOOD BILIRUBIN INCREASED [None]
  - HEPATITIS [None]
  - HEPATIC FIBROSIS [None]
  - CELL DEATH [None]
  - JAUNDICE [None]
  - ASTHENIA [None]
